FAERS Safety Report 11144270 (Version 1)
Quarter: 2015Q2

REPORT INFORMATION
  Report Type: Spontaneous
  Country: GB (occurrence: GB)
  Receive Date: 20150528
  Receipt Date: 20150528
  Transmission Date: 20150821
  Serious: Yes (Hospitalization, Other)
  Sender: FDA-Public Use
  Company Number: GB-TEVA-564658ACC

PATIENT
  Age: 62 Year
  Sex: Female
  Weight: 60 kg

DRUGS (1)
  1. NITROFURANTOIN. [Suspect]
     Active Substance: NITROFURANTOIN
     Indication: URINARY TRACT INFECTION
     Route: 048

REACTIONS (2)
  - Infection [Not Recovered/Not Resolved]
  - Pancytopenia [Unknown]
